FAERS Safety Report 9338556 (Version 1)
Quarter: 2013Q2

REPORT INFORMATION
  Report Type: Spontaneous
  Country: CH (occurrence: CH)
  Receive Date: 20130610
  Receipt Date: 20130610
  Transmission Date: 20140414
  Serious: Yes (Other)
  Sender: FDA-Public Use
  Company Number: CH-009507513-1306CHE003720

PATIENT
  Age: 29 Year
  Sex: Male

DRUGS (6)
  1. RALTEGRAVIR POTASSIUM [Suspect]
     Indication: HIV INFECTION
     Dosage: 100 MG, QD
     Route: 048
  2. RITONAVIR [Suspect]
     Indication: HIV INFECTION
     Dosage: 800 MG, QD
     Route: 048
  3. DARUNAVIR [Concomitant]
     Dosage: 800 MG, QD
     Route: 048
  4. LAMIVUDINE [Concomitant]
     Dosage: 300 MG, QD
     Route: 048
  5. MARAVIROC [Concomitant]
     Dosage: 300 MG, QD
     Route: 048
  6. TAMSULOSIN HYDROCHLORIDE [Concomitant]
     Dosage: 400 MICROGRAM, QD
     Route: 048

REACTIONS (2)
  - Renal stone removal [Recovered/Resolved]
  - Nephrolithiasis [Recovered/Resolved]
